FAERS Safety Report 21651684 (Version 1)
Quarter: 2022Q4

REPORT INFORMATION
  Report Type: Spontaneous
  Country: MY (occurrence: MY)
  Receive Date: 20221128
  Receipt Date: 20221128
  Transmission Date: 20230112
  Serious: Yes (Hospitalization)
  Sender: FDA-Public Use
  Company Number: MY-VER-202200002

PATIENT
  Age: 60 Year
  Sex: Male

DRUGS (4)
  1. TRIPTORELIN PAMOATE [Suspect]
     Active Substance: TRIPTORELIN PAMOATE
     Indication: Hormone-dependent prostate cancer
     Dosage: 1 DOSE EVERY 3-6 MONTHS
     Route: 030
     Dates: start: 20220628, end: 20221107
  2. MEROPENEM [Concomitant]
     Active Substance: MEROPENEM
     Indication: Product used for unknown indication
     Route: 065
     Dates: start: 20221103, end: 20221107
  3. CALCIUM PLUS VIT D3 [Concomitant]
     Indication: Product used for unknown indication
     Dosage: 600 MG PLUS 500 IU
     Route: 065
     Dates: start: 20220728, end: 20221107
  4. BICALUTAMIDE [Concomitant]
     Active Substance: BICALUTAMIDE
     Indication: Product used for unknown indication
     Route: 065
     Dates: start: 20220728, end: 20221107

REACTIONS (3)
  - Pyrexia [Unknown]
  - Off label use [Unknown]
  - Drug ineffective [Unknown]

NARRATIVE: CASE EVENT DATE: 20220728
